FAERS Safety Report 7684724-9 (Version None)
Quarter: 2011Q3

REPORT INFORMATION
  Report Type: 
  Country: None (occurrence: None)
  Receive Date: 20110711
  Receipt Date: 20110520
  Transmission Date: 20111222
  Serious: Yes (Other)
  Sender: FDA-Public Use
  Company Number: IPC201105-001517

PATIENT
  Sex: Male

DRUGS (4)
  1. METOCLOPRAMIDE HYDROCHLORIDE [Suspect]
     Dates: start: 20080101, end: 20100301
  2. METOCLOPRAMIDE HCL [Suspect]
     Dates: start: 20080101, end: 20100301
  3. METOCLOPRAMIDE [Suspect]
     Dates: start: 20080101, end: 20100301
  4. METOCLOPRAMIDE [Suspect]
     Dates: start: 20080101, end: 20100301

REACTIONS (1)
  - TARDIVE DYSKINESIA [None]
